FAERS Safety Report 6409260-9 (Version None)
Quarter: 2009Q4

REPORT INFORMATION
  Report Type: 
  Country: None (occurrence: None)
  Receive Date: 20091021
  Receipt Date: 20091014
  Transmission Date: 20100525
  Serious: Yes (Hospitalization)
  Sender: FDA-Public Use
  Company Number: GB-GENENTECH-292554

PATIENT
  Age: 43 Year
  Sex: Female

DRUGS (1)
  1. HERCEPTIN [Suspect]
     Indication: DRUG USE FOR UNKNOWN INDICATION
     Dosage: 390 MG, UNK
     Route: 065

REACTIONS (4)
  - CHEST DISCOMFORT [None]
  - HALLUCINATION [None]
  - PARAESTHESIA [None]
  - TREMOR [None]
